FAERS Safety Report 15482640 (Version 3)
Quarter: 2019Q1

REPORT INFORMATION
  Report Type: Spontaneous
  Country: ES (occurrence: ES)
  Receive Date: 20181010
  Receipt Date: 20190118
  Transmission Date: 20190417
  Serious: Yes (Other)
  Sender: FDA-Public Use
  Company Number: ES-PFIZER INC-2018401023

PATIENT
  Age: 30 Year
  Sex: Female

DRUGS (2)
  1. DALACIN [Suspect]
     Active Substance: CLINDAMYCIN
     Indication: CEREBRAL TOXOPLASMOSIS
     Dosage: 1 DF, 3X/DAY (EVERY 8 HOURS)
     Route: 048
     Dates: start: 20170824, end: 2018
  2. DARAPRIM [Suspect]
     Active Substance: PYRIMETHAMINE
     Dosage: UNK

REACTIONS (3)
  - Dizziness [Recovered/Resolved]
  - Syncope [Recovered/Resolved]
  - Loss of consciousness [Recovered/Resolved]

NARRATIVE: CASE EVENT DATE: 2018
